FAERS Safety Report 4860821-8 (Version None)
Quarter: 2005Q4

REPORT INFORMATION
  Report Type: 
  Country: None (occurrence: None)
  Receive Date: 20051216
  Receipt Date: 20051216
  Transmission Date: 20060501
  Serious: Yes (Hospitalization)
  Sender: FDA-Public Use
  Company Number: None

PATIENT
  Age: 71 Year
  Sex: Male
  Weight: 97.977 kg

DRUGS (1)
  1. ROSUVASTATIN   10 MG     ASTRA ZENEA [Suspect]
     Indication: HYPERCHOLESTEROLAEMIA
     Dosage: 10 MG  DAILY  PO
     Route: 048

REACTIONS (3)
  - HEPATIC FAILURE [None]
  - MENTAL STATUS CHANGES [None]
  - RHABDOMYOLYSIS [None]
